FAERS Safety Report 21038882 (Version 4)
Quarter: 2023Q1

REPORT INFORMATION
  Report Type: Spontaneous
  Country: US (occurrence: US)
  Receive Date: 20220704
  Receipt Date: 20230110
  Transmission Date: 20230418
  Serious: No
  Sender: FDA-Public Use
  Company Number: US-BRISTOL-MYERS SQUIBB COMPANY-2022-067959

PATIENT
  Age: 78 Year
  Sex: Female

DRUGS (2)
  1. ORENCIA [Suspect]
     Active Substance: ABATACEPT
     Indication: Product used for unknown indication
     Dosage: DOSE : 125 MG/ML
     Route: 058
  2. COVID-19 BOOSTER [Concomitant]
     Indication: COVID-19 immunisation

REACTIONS (5)
  - Illness [Unknown]
  - Sinusitis [Recovering/Resolving]
  - Infection [Unknown]
  - Fungal infection [Recovering/Resolving]
  - Weight decreased [Unknown]
